FAERS Safety Report 11418808 (Version 1)
Quarter: 2015Q3

REPORT INFORMATION
  Report Type: Spontaneous
  Country: DE (occurrence: None)
  Receive Date: 20150824
  Receipt Date: 20150824
  Transmission Date: 20151125
  Serious: Yes (Hospitalization)
  Sender: FDA-Public Use
  Company Number: KAD201507-002404

PATIENT
  Age: 65 Year
  Sex: Female
  Weight: 73.3 kg

DRUGS (15)
  1. ABT-450/RITONAVIR/ABT-267 (OMBITASVIR, PARITAPREVIR, RITONAVIR) [Suspect]
     Active Substance: OMBITASVIR\PARITAPREVIR\RITONAVIR
     Indication: HEPATITIS C
     Dosage: 150/100/25 MG
     Route: 048
     Dates: start: 20150706
  2. PANTOZOL (PANTOPRAZOLE SODIUM SESQUIHYDRATE) (PANTOPRAZOLE SODIUM SESQUIHYDRATE) [Concomitant]
  3. DEXAMETHASONE (DEXAMETHASONE) (DEXAMETHASONE) [Concomitant]
     Active Substance: DEXAMETHASONE
  4. TAVOR (LORAZEPAM) (LORAZEPAM) [Concomitant]
  5. MUPIROCIN (MUPIROCIN) (MUPIROCIN) [Concomitant]
  6. L-THYROXIN (LEVOTHYROXINE SODIUM) (LEVOTHYROXINE SODIUM) [Concomitant]
  7. FRESUBIN (VITAMINS NOS, MINERALS NOS, CARBOHYDRATES NOS, PROTEINS NOS, FATTY ACIDS NOS) (VITAMINS NOS, MINERALS NOS, CARBOHYDRATES NOS, PROTEINS NOS, FATTY ACIDS NOS) [Concomitant]
  8. RIBAVIRIN 200 MG TABLETS (RIBAVIRIN) [Suspect]
     Active Substance: RIBAVIRIN
     Indication: HEPATITIS C
     Dosage: BASELINE TOTAL DAILY DOSE
     Route: 048
     Dates: start: 20150706
  9. TOREM (TORASEMIDE) (TORASEMIDE) [Concomitant]
  10. SPIRONOLACTONE (SPIRONOLACTONE)  (SPIRONOLACTONE) [Concomitant]
     Active Substance: SPIRONOLACTONE
  11. NOVALGIN (METAMIZOLE SODIUM) (METAMIZOLE SODIUM) [Concomitant]
  12. LAVASEPT (POLIHEXANIDE) (POLIHEXANIDE) [Concomitant]
  13. FENISTIL (DIMETINDENE MALEATE) (DIMETINDENE MALEATE) [Concomitant]
  14. MCP (METOCHLOPRAMIDE HYDROCHLORIDE) (METOCHLOPRAMIDE HYDROCHLORIDE) [Concomitant]
  15. ZOLPIDEM (ZOLPIDEM TARTRATE) (ZOLPIDEM TARTRATE) [Concomitant]

REACTIONS (4)
  - Diarrhoea [None]
  - Dehydration [None]
  - Staphylococcal infection [None]
  - General physical health deterioration [None]

NARRATIVE: CASE EVENT DATE: 20150707
